FAERS Safety Report 7052004-0 (Version None)
Quarter: 2010Q4

REPORT INFORMATION
  Report Type: 
  Country: None (occurrence: None)
  Receive Date: 20101019
  Receipt Date: 20101012
  Transmission Date: 20110411
  Serious: Yes (Other)
  Sender: FDA-Public Use
  Company Number: B0680037A

PATIENT
  Age: 9 Month
  Sex: Male

DRUGS (3)
  1. ZANTAC [Suspect]
     Indication: GASTROENTERITIS
     Dosage: 1ML CUMULATIVE DOSE
     Route: 042
     Dates: start: 20101005, end: 20101005
  2. AMPICILLIN [Concomitant]
  3. SULBACTAM [Concomitant]
     Route: 042

REACTIONS (2)
  - CONVULSION [None]
  - PYREXIA [None]
